FAERS Safety Report 23781588 (Version 1)
Quarter: 2024Q2

REPORT INFORMATION
  Report Type: Spontaneous
  Country: CH (occurrence: CH)
  Receive Date: 20240425
  Receipt Date: 20240425
  Transmission Date: 20240715
  Serious: Yes (Hospitalization)
  Sender: FDA-Public Use
  Company Number: CH-JNJFOC-20240464500

PATIENT
  Age: 56 Year
  Sex: Female

DRUGS (14)
  1. SPRAVATO [Suspect]
     Active Substance: ESKETAMINE
     Indication: Depression
     Dosage: FOR 4 WEEKS
     Dates: start: 20240106
  2. SPRAVATO [Suspect]
     Active Substance: ESKETAMINE
  3. SPRAVATO [Suspect]
     Active Substance: ESKETAMINE
     Dates: start: 20240229, end: 20240411
  4. XARELTO [Concomitant]
     Active Substance: RIVAROXABAN
  5. QUETIAPINE [Concomitant]
     Active Substance: QUETIAPINE
  6. VALSARTAN [Concomitant]
     Active Substance: VALSARTAN
     Dosage: 1-0-1
  7. ROSUVASTATIN [Concomitant]
     Active Substance: ROSUVASTATIN
     Dosage: 0-0-1
  8. PREGABALIN [Concomitant]
     Active Substance: PREGABALIN
  9. PANTOPRAZOLE SODIUM [Concomitant]
     Active Substance: PANTOPRAZOLE SODIUM
  10. JARDIANCE [Concomitant]
     Active Substance: EMPAGLIFLOZIN
     Dosage: 1-0-0
  11. METFORMIN HYDROCHLORIDE\VILDAGLIPTIN [Concomitant]
     Active Substance: METFORMIN HYDROCHLORIDE\VILDAGLIPTIN
     Dosage: 50/1000MG, 1-0-1
  12. GLICLAZIDE [Concomitant]
     Active Substance: GLICLAZIDE
     Dosage: 1-0-1
  13. VITAMIN D3 [Concomitant]
     Active Substance: CHOLECALCIFEROL
     Dosage: 1-0-0
  14. LYMAN [ALOXIPRIN] [Concomitant]
     Dosage: 200000 FORTE EMUGEL 200000IE MORNING AND EVENING

REACTIONS (2)
  - Depression [Unknown]
  - Ataxia [Recovered/Resolved]

NARRATIVE: CASE EVENT DATE: 20240101
